FAERS Safety Report 4413585-6 (Version None)
Quarter: 2004Q3

REPORT INFORMATION
  Report Type: 
  Country: None (occurrence: None)
  Receive Date: 20040728
  Receipt Date: 20040712
  Transmission Date: 20050211
  Serious: Yes (Other)
  Sender: FDA-Public Use
  Company Number: DSA_24667_2004

PATIENT
  Age: 42 Year
  Sex: Male

DRUGS (10)
  1. ATIVAN [Suspect]
  2. ATIVAN [Suspect]
     Dosage: DF Q DAY PO
     Route: 048
     Dates: start: 20030308
  3. ALCOHOL [Suspect]
     Dosage: DF DAILY
  4. CLOZARIL [Suspect]
     Indication: SCHIZOPHRENIA
     Dosage: 2000 MG ONCE PO
     Route: 048
  5. CLOZARIL [Suspect]
     Indication: SCHIZOPHRENIA
     Dosage: 300 MG Q DAY PO
     Route: 048
     Dates: start: 19900201
  6. FLUOXETINE [Suspect]
  7. HYOSCINE HBR HYT [Suspect]
     Dosage: 25 TAB ONCE PO
     Route: 048
  8. HYOSCINE HBR HYT [Suspect]
     Dosage: DF Q DAY PO
     Route: 048
     Dates: start: 20040308
  9. PROCYCLIDINE HYDROCHLORIDE 2MG TAB [Suspect]
     Dosage: DF DAILY PO
     Route: 048
     Dates: start: 20030308
  10. PROCYCLIDINE HYDROCHLORIDE 2MG TAB [Suspect]

REACTIONS (3)
  - ABDOMINAL PAIN UPPER [None]
  - MULTIPLE DRUG OVERDOSE [None]
  - SOMNOLENCE [None]
